FAERS Safety Report 20182442 (Version 1)
Quarter: 2021Q4

REPORT INFORMATION
  Report Type: Report from Study
  Country: US (occurrence: US)
  Receive Date: 20211214
  Receipt Date: 20211214
  Transmission Date: 20220303
  Serious: Yes (Death)
  Sender: FDA-Public Use
  Company Number: US-PFIZER INC-2019408433

PATIENT

DRUGS (3)
  1. PACLITAXEL [Suspect]
     Active Substance: PACLITAXEL
     Indication: Non-small cell lung cancer stage III
     Dosage: 45 MG/M2, OVER 30 MINUTES ONCE WEEKLY
     Route: 042
  2. CARBOPLATIN [Suspect]
     Active Substance: CARBOPLATIN
     Indication: Non-small cell lung cancer stage III
     Dosage: AREA UNDER THE CURVE [AUC] 2 OVER 30 MINUTES ONCE WEEKLY
     Route: 042
  3. VELIPARIB [Suspect]
     Active Substance: VELIPARIB
     Indication: Non-small cell lung cancer stage III
     Dosage: UNK, 2X/DAY

REACTIONS (1)
  - Oesophageal perforation [Fatal]
